FAERS Safety Report 8914166 (Version 1)
Quarter: 2012Q4

REPORT INFORMATION
  Report Type: 
  Country: JP (occurrence: JP)
  Receive Date: 20121119
  Receipt Date: 20121119
  Transmission Date: 20130627
  Serious: Yes (Disabling, Other)
  Sender: FDA-Public Use
  Company Number: JP-009507513-1206USA01689

PATIENT
  Age: 74 Year
  Sex: Male

DRUGS (3)
  1. PREMINENT TABLETS [Suspect]
     Indication: HYPERTENSION
     Dosage: 1 DF, qd
     Route: 048
     Dates: start: 201104, end: 201108
  2. NU-LOTAN TABLETS 50MG [Suspect]
     Indication: HYPERTENSION
     Dosage: 50 mg, qd
     Route: 048
     Dates: start: 201108, end: 201203
  3. ADALAT CR [Concomitant]
     Indication: HYPERTENSION
     Route: 048
     Dates: start: 201104, end: 201203

REACTIONS (3)
  - Cerebral infarction [Unknown]
  - Renal failure [Unknown]
  - Renal impairment [Unknown]
